FAERS Safety Report 16121329 (Version 2)
Quarter: 2019Q1

REPORT INFORMATION
  Report Type: Spontaneous
  Country: IT (occurrence: IT)
  Receive Date: 20190327
  Receipt Date: 20190327
  Transmission Date: 20190418
  Serious: Yes (Other)
  Sender: FDA-Public Use
  Company Number: IT-ACCORD-115391

PATIENT
  Age: 40 Year
  Sex: Female
  Weight: 70 kg

DRUGS (11)
  1. LEVETIRACETAM. [Suspect]
     Active Substance: LEVETIRACETAM
     Indication: GENERALISED TONIC-CLONIC SEIZURE
     Route: 048
  2. ETHINYLESTRADIOL/ETHINYLESTRADIOLUM PROPANSULFO [Suspect]
     Active Substance: ETHINYL ESTRADIOL
     Indication: HORMONE THERAPY
     Dosage: 0.075 MG, UNK (SCHEDULED TO BE ADMINISTERED FOR 28 DAYS; RECEIVED DURING IN VITRO FERTILIZATION)
     Route: 065
  3. LAMOTRIGINE. [Interacting]
     Active Substance: LAMOTRIGINE
     Indication: PARTIAL SEIZURES
     Dosage: 350 MG, QD, ALSO TAKEN 450 MG(450 MG, QD)
  4. CETRORELIX [Suspect]
     Active Substance: CETRORELIX
     Indication: HYPOTHALAMO-PITUITARY DISORDER
     Dosage: 0.25 MG, UNK (FOR 8 DAYS, RECEIVED DURING IN VITRO FERTILIZATION))
     Route: 065
  5. PUREGON (FOLLITROPIN BETA) [Suspect]
     Active Substance: FOLLITROPIN
     Indication: IN VITRO FERTILISATION
     Dosage: 300 IU, UNK ( (SCHEDULED TO BE ADMINISTERED FOR 8 DAYS; RECEIVED DURING IN VITRO FERTILIZATION FRO)
     Route: 030
     Dates: start: 20120517, end: 20120524
  6. CLOBAZAM. [Concomitant]
     Active Substance: CLOBAZAM
     Indication: EPILEPSY
     Dosage: 10 MG, BID
  7. ESTRADIOL. [Interacting]
     Active Substance: ESTRADIOL
     Indication: ASSISTED REPRODUCTIVE TECHNOLOGY
     Dosage: 4 MG, FOR 10 DAYS
  8. ESTRADIOL. [Interacting]
     Active Substance: ESTRADIOL
     Indication: HORMONE THERAPY
     Dosage: 4 MG, FOR 10 DAYS
  9. KEPPRA [Suspect]
     Active Substance: LEVETIRACETAM
     Indication: EPILEPSY
     Dosage: 1000 MG, TID
     Route: 048
     Dates: start: 20110418
  10. GESTODENE [Suspect]
     Active Substance: GESTODENE
     Indication: IN VITRO FERTILISATION
     Dosage: 0.03 MG, UNK (SCHEDULED TO BE ADMINISTERED FOR 28 DAYS; RECEIVED DURING IN VITRO FERTILIZATION)
     Route: 065
  11. LAMOTRIGINE. [Interacting]
     Active Substance: LAMOTRIGINE
     Indication: PARTIAL SEIZURES
     Dosage: 450 MG, QD

REACTIONS (6)
  - Generalised tonic-clonic seizure [Recovered/Resolved]
  - Drug ineffective [Unknown]
  - Drug level decreased [Unknown]
  - Maternal exposure during pregnancy [None]
  - Condition aggravated [Recovered/Resolved]
  - Drug interaction [Unknown]

NARRATIVE: CASE EVENT DATE: 20120522
